FAERS Safety Report 15125143 (Version 1)
Quarter: 2018Q3

REPORT INFORMATION
  Report Type: Spontaneous
  Country: US (occurrence: US)
  Receive Date: 20180710
  Receipt Date: 20180710
  Transmission Date: 20181010
  Serious: Yes (Other)
  Sender: FDA-Public Use
  Company Number: US-AMGEN-USASP2018082560

PATIENT
  Age: 71 Year
  Sex: Female
  Weight: 82.86 kg

DRUGS (1)
  1. REPATHA [Suspect]
     Active Substance: EVOLOCUMAB
     Indication: PRODUCT USED FOR UNKNOWN INDICATION
     Dosage: 140 MG, Q2WK
     Route: 065
     Dates: start: 201805

REACTIONS (5)
  - Nasopharyngitis [Unknown]
  - Muscle spasms [Recovering/Resolving]
  - Tremor [Recovering/Resolving]
  - Influenza like illness [Unknown]
  - Myalgia [Unknown]

NARRATIVE: CASE EVENT DATE: 2018
